FAERS Safety Report 12285223 (Version 1)
Quarter: 2016Q2

REPORT INFORMATION
  Report Type: Spontaneous
  Country: US (occurrence: None)
  Receive Date: 20160419
  Receipt Date: 20160419
  Transmission Date: 20160815
  Serious: No
  Sender: FDA-Public Use
  Company Number: None

PATIENT
  Sex: Male

DRUGS (4)
  1. TOUJEO [Suspect]
     Active Substance: INSULIN GLARGINE
  2. METFORMIN [Suspect]
     Active Substance: METFORMIN HYDROCHLORIDE
  3. GLUCOTROL [Suspect]
     Active Substance: GLIPIZIDE
  4. AVANDIA [Suspect]
     Active Substance: ROSIGLITAZONE MALEATE

REACTIONS (3)
  - Coronary artery bypass [None]
  - Sepsis [None]
  - Headache [None]
